FAERS Safety Report 9326358 (Version 2)
Quarter: 2013Q3

REPORT INFORMATION
  Report Type: Report from Study
  Country: JP (occurrence: JP)
  Receive Date: 20130604
  Receipt Date: 20130726
  Transmission Date: 20140515
  Serious: Yes (Hospitalization, Other)
  Sender: FDA-Public Use
  Company Number: JP-ASTRAZENECA-2013SE39995

PATIENT
  Age: 64 Year
  Sex: Male

DRUGS (7)
  1. OMEPRAZON [Suspect]
     Indication: PROPHYLAXIS
     Route: 048
     Dates: start: 20130409, end: 20130411
  2. GLYCEOL [Suspect]
     Indication: EMBOLIC STROKE
     Route: 041
     Dates: start: 20130408, end: 20130413
  3. RADICUT BAG [Suspect]
     Indication: EMBOLIC STROKE
     Route: 041
     Dates: start: 20130407, end: 20130410
  4. ACTIVACIN [Concomitant]
     Route: 042
     Dates: start: 20130407
  5. HEPARIN SODIUM [Concomitant]
     Route: 041
     Dates: start: 20130409, end: 20130418
  6. RASENAZOLIN [Concomitant]
     Route: 051
     Dates: start: 20130410, end: 20130415
  7. PHENOBAL [Concomitant]
     Route: 065
     Dates: start: 20130410, end: 20130410

REACTIONS (2)
  - Renal impairment [Recovered/Resolved]
  - Cerebral infarction [Recovered/Resolved with Sequelae]
